FAERS Safety Report 12743507 (Version 1)
Quarter: 2016Q3

REPORT INFORMATION
  Report Type: Spontaneous
  Country: US (occurrence: US)
  Receive Date: 20160914
  Receipt Date: 20160914
  Transmission Date: 20161109
  Serious: Yes (Hospitalization)
  Sender: FDA-Public Use
  Company Number: None

PATIENT
  Age: 48 Year
  Sex: Female
  Weight: 58.51 kg

DRUGS (2)
  1. OXCARBAZEPINE. [Suspect]
     Active Substance: OXCARBAZEPINE
     Indication: ADJUSTMENT DISORDER
     Route: 048
     Dates: start: 20160816, end: 20160822
  2. OXCARBAZEPINE. [Suspect]
     Active Substance: OXCARBAZEPINE
     Indication: MAJOR DEPRESSION
     Dosage: 150MG X2DAYS BID PO
     Route: 048
     Dates: start: 20160813, end: 20160815

REACTIONS (3)
  - Nonspecific reaction [None]
  - Dermatitis contact [None]
  - Rash [None]

NARRATIVE: CASE EVENT DATE: 20160822
